FAERS Safety Report 10453394 (Version 2)
Quarter: 2014Q3

REPORT INFORMATION
  Report Type: Report from Study
  Country: CI (occurrence: CI)
  Receive Date: 20140915
  Receipt Date: 20140922
  Transmission Date: 20150326
  Serious: Yes (Congenital Anomaly)
  Sender: FDA-Public Use
  Company Number: CI-GILEAD-2014-0115223

PATIENT
  Age: 0 Day
  Sex: Male
  Weight: 2.8 kg

DRUGS (5)
  1. ALUVIA [Suspect]
     Active Substance: LOPINAVIR\RITONAVIR
     Indication: HIV INFECTION
     Dosage: 1 DF, UNK
     Route: 064
     Dates: start: 20120530
  2. RHINOFEBRAL [Concomitant]
     Active Substance: UNSPECIFIED INGREDIENT
     Indication: NASOPHARYNGITIS
     Dosage: UNK
     Dates: start: 20140618, end: 20140625
  3. VIBROCIL                           /00168701/ [Concomitant]
     Indication: NASOPHARYNGITIS
     Dosage: UNK
     Dates: start: 20140618, end: 20140625
  4. FEFOL                              /00098901/ [Concomitant]
     Indication: ANAEMIA
     Dosage: UNK
     Dates: start: 20140117, end: 20140901
  5. EMTRICITABINE/TENOFOVIR DISOPROXIL FUMARATE [Suspect]
     Active Substance: EMTRICITABINE\TENOFOVIR DISOPROXIL
     Indication: HIV INFECTION
     Dosage: 1 DF, UNK
     Route: 064
     Dates: start: 20120530

REACTIONS (1)
  - Neonatal disorder [Unknown]

NARRATIVE: CASE EVENT DATE: 20140627
